FAERS Safety Report 18284502 (Version 2)
Quarter: 2020Q4

REPORT INFORMATION
  Report Type: Other
  Country: US (occurrence: US)
  Receive Date: 20200918
  Receipt Date: 20201110
  Transmission Date: 20210113
  Serious: Yes (Life-Threatening, Other)
  Sender: FDA-Public Use
  Company Number: US-GLENMARK PHARMACEUTICALS-2020GMK049561

PATIENT

DRUGS (1)
  1. GABAPENTIN TABLETS USP, 600 MG [Suspect]
     Active Substance: GABAPENTIN
     Indication: NEURALGIA
     Dosage: 2 DOSAGE FORM, QID
     Route: 048
     Dates: end: 2020

REACTIONS (7)
  - Tremor [Recovered/Resolved]
  - Product substitution issue [Unknown]
  - Overdose [Unknown]
  - Pain [Recovered/Resolved]
  - Neuralgia [Recovered/Resolved]
  - Drug ineffective [Unknown]
  - Suicidal ideation [Recovered/Resolved]

NARRATIVE: CASE EVENT DATE: 2020
